FAERS Safety Report 25390632 (Version 2)
Quarter: 2025Q3

REPORT INFORMATION
  Report Type: Spontaneous
  Country: JP (occurrence: JP)
  Receive Date: 20250603
  Receipt Date: 20250810
  Transmission Date: 20251021
  Serious: Yes (Other)
  Sender: ALEXION PHARMACEUTICALS
  Company Number: JP-ASTRAZENECA-250052706_063010_P_1

PATIENT
  Age: 5 Decade
  Sex: Female

DRUGS (14)
  1. DAPAGLIFLOZIN [Suspect]
     Active Substance: DAPAGLIFLOZIN
     Indication: Cardiac failure chronic
     Dosage: 10 MILLIGRAM, QD
  2. BISOPROLOL [Concomitant]
     Active Substance: BISOPROLOL
     Route: 065
  3. SPIRONOLACTONE [Concomitant]
     Active Substance: SPIRONOLACTONE
     Route: 065
  4. DOBUTAMINE [Concomitant]
     Active Substance: DOBUTAMINE HYDROCHLORIDE
     Route: 065
  5. DOBUTAMINE [Concomitant]
     Active Substance: DOBUTAMINE HYDROCHLORIDE
     Route: 065
  6. DOBUTAMINE [Concomitant]
     Active Substance: DOBUTAMINE HYDROCHLORIDE
     Route: 065
  7. DOBUTAMINE [Concomitant]
     Active Substance: DOBUTAMINE HYDROCHLORIDE
     Route: 065
  8. TOLVAPTAN [Concomitant]
     Active Substance: TOLVAPTAN
  9. TOLVAPTAN [Concomitant]
     Active Substance: TOLVAPTAN
  10. MILRINONE [Concomitant]
     Active Substance: MILRINONE
     Route: 065
  11. DIGOXIN [Concomitant]
     Active Substance: DIGOXIN
     Dosage: 0.25 MILLIGRAM, BID
  12. ENALAPRIL [Concomitant]
     Active Substance: ENALAPRIL
     Route: 065
  13. ENALAPRIL [Concomitant]
     Active Substance: ENALAPRIL
     Route: 065
  14. IVABRADINE HYDROCHLORIDE [Concomitant]
     Active Substance: IVABRADINE HYDROCHLORIDE
     Route: 065

REACTIONS (6)
  - Atrial fibrillation [Unknown]
  - Venous oxygen saturation decreased [Unknown]
  - Pulmonary arterial wedge pressure increased [Unknown]
  - Sinus tachycardia [Unknown]
  - Nausea [Unknown]
  - Artificial heart implant [Unknown]
